FAERS Safety Report 5070284-8 (Version None)
Quarter: 2006Q3

REPORT INFORMATION
  Report Type: 
  Country: None (occurrence: None)
  Receive Date: 20060731
  Receipt Date: 20060721
  Transmission Date: 20061208
  Serious: Yes (Hospitalization, Disabling)
  Sender: FDA-Public Use
  Company Number: 2006-05-1371

PATIENT
  Age: 68 Year
  Sex: Female
  Weight: 43 kg

DRUGS (2)
  1. PEG-INTRON [Suspect]
     Indication: HEPATITIS C
     Dosage: 50-30 MCG QW SUBCUTANEOUS
     Route: 058
     Dates: start: 20060105, end: 20060511
  2. REBETOL [Suspect]
     Indication: HEPATITIS C
     Dosage: 400-200 MG ORAL
     Route: 048
     Dates: start: 20060105, end: 20060514

REACTIONS (10)
  - BLOOD ALBUMIN DECREASED [None]
  - DIARRHOEA [None]
  - HAEMOGLOBIN DECREASED [None]
  - HEARING IMPAIRED [None]
  - LOSS OF CONSCIOUSNESS [None]
  - MALAISE [None]
  - OTITIS MEDIA [None]
  - PLATELET COUNT DECREASED [None]
  - SUBARACHNOID HAEMORRHAGE [None]
  - WHITE BLOOD CELL COUNT DECREASED [None]
